FAERS Safety Report 7167328-6 (Version None)
Quarter: 2010Q4

REPORT INFORMATION
  Report Type: 
  Country: None (occurrence: None)
  Receive Date: 20101216
  Receipt Date: 20101208
  Transmission Date: 20110411
  Serious: Yes (Hospitalization)
  Sender: FDA-Public Use
  Company Number: PHHO2005BE11617

PATIENT
  Sex: Male

DRUGS (1)
  1. AMN107 AMN+CAP [Suspect]
     Indication: SYSTEMIC MASTOCYTOSIS
     Dosage: 200 MG, BID
     Route: 048
     Dates: start: 20050719, end: 20050724

REACTIONS (4)
  - COLITIS [None]
  - INTESTINAL OBSTRUCTION [None]
  - OEDEMA MUCOSAL [None]
  - VOMITING [None]
